FAERS Safety Report 17162403 (Version 4)
Quarter: 2021Q3

REPORT INFORMATION
  Report Type: Spontaneous
  Country: US (occurrence: US)
  Receive Date: 20191217
  Receipt Date: 20210720
  Transmission Date: 20211014
  Serious: Yes (Other)
  Sender: FDA-Public Use
  Company Number: US-GILEAD-2019-0442859

PATIENT
  Age: 61 Year
  Sex: Male

DRUGS (26)
  1. AZITHROMYCIN ANHYDROUS. [Concomitant]
     Active Substance: AZITHROMYCIN ANHYDROUS
  2. FOLIC ACID. [Concomitant]
     Active Substance: FOLIC ACID
  3. VITAMINS NOS [Concomitant]
     Active Substance: VITAMINS
  4. LISINOPRIL. [Concomitant]
     Active Substance: LISINOPRIL
     Indication: PRODUCT USED FOR UNKNOWN INDICATION
     Route: 065
  5. ABACAVIR. [Concomitant]
     Active Substance: ABACAVIR
  6. FISH OIL [Concomitant]
     Active Substance: FISH OIL
  7. DILTIAZEM. [Concomitant]
     Active Substance: DILTIAZEM
  8. TIVICAY [Concomitant]
     Active Substance: DOLUTEGRAVIR SODIUM
  9. FLUARIX NOS [Concomitant]
     Active Substance: INFLUENZA VIRUS VACCINE
  10. ATORVASTATIN [Concomitant]
     Active Substance: ATORVASTATIN
  11. PREDNISONE. [Concomitant]
     Active Substance: PREDNISONE
  12. TRIUMEQ [Concomitant]
     Active Substance: ABACAVIR SULFATE\DOLUTEGRAVIR SODIUM\LAMIVUDINE
  13. LAMIVUDINE. [Concomitant]
     Active Substance: LAMIVUDINE
  14. DEXAMETHASONE. [Concomitant]
     Active Substance: DEXAMETHASONE
  15. ATRIPLA [Suspect]
     Active Substance: EFAVIRENZ\EMTRICITABINE\TENOFOVIR DISOPROXIL FUMARATE
     Dosage: UNK
     Route: 048
     Dates: start: 20150515, end: 20161101
  16. PROMETHAZINE ? CODEINE [CODEINE PHOSPHATE;PROMETHAZINE HYDROCHLORIDE] [Concomitant]
  17. DOXYCYCLINE HYCLATE. [Concomitant]
     Active Substance: DOXYCYCLINE HYCLATE
  18. HYDROCODONE/ACETAMINOPHEN [Concomitant]
     Active Substance: ACETAMINOPHEN\HYDROCODONE
  19. BENZONATATE. [Concomitant]
     Active Substance: BENZONATATE
  20. CHLORHEXIDINE [Concomitant]
     Active Substance: CHLORHEXIDINE
  21. VITAMIN D3 [Concomitant]
     Active Substance: CHOLECALCIFEROL
  22. ATRIPLA [Suspect]
     Active Substance: EFAVIRENZ\EMTRICITABINE\TENOFOVIR DISOPROXIL FUMARATE
     Indication: HIV INFECTION
     Dosage: UNK
     Route: 048
     Dates: start: 20111201, end: 20161101
  23. CARTIA XT [Concomitant]
     Active Substance: DILTIAZEM HYDROCHLORIDE
  24. B COMPLEX B12 [Concomitant]
  25. FLUVIRIN [INFLUENZA VACCINE INACT SAG 3V] [Concomitant]
  26. AMITRIPTYLINE [Concomitant]
     Active Substance: AMITRIPTYLINE

REACTIONS (8)
  - Emotional distress [Unknown]
  - Anxiety [Unknown]
  - Chronic kidney disease [Not Recovered/Not Resolved]
  - Proteinuria [Not Recovered/Not Resolved]
  - Renal failure [Unknown]
  - Pain [Unknown]
  - Anhedonia [Unknown]
  - Economic problem [Unknown]

NARRATIVE: CASE EVENT DATE: 20150827
